FAERS Safety Report 9270289 (Version 5)
Quarter: 2014Q2

REPORT INFORMATION
  Report Type: Spontaneous
  Country: US (occurrence: US)
  Receive Date: 20130503
  Receipt Date: 20140630
  Transmission Date: 20141212
  Serious: Yes (Other)
  Sender: FDA-Public Use
  Company Number: US-009507513-1305USA000884

PATIENT
  Sex: Male
  Weight: 85.26 kg

DRUGS (3)
  1. PROPECIA [Suspect]
     Indication: ANDROGENETIC ALOPECIA
     Dosage: 1 MG, QD
     Route: 048
     Dates: start: 1999, end: 20110614
  2. FINASTERIDE [Suspect]
     Indication: ANDROGENETIC ALOPECIA
     Dosage: 5 MG, QD, 1 QUARTER TAB DAILY
     Route: 048
     Dates: start: 20100622, end: 20120328
  3. FINASTERIDE [Suspect]
     Indication: ANDROGENETIC ALOPECIA
     Dosage: 5 MG, UNK
     Route: 048
     Dates: start: 20110126, end: 20110328

REACTIONS (20)
  - Surgery [Unknown]
  - Blood testosterone increased [Unknown]
  - Insomnia [Unknown]
  - Hypertension [Unknown]
  - Polyp [Unknown]
  - Chronic obstructive pulmonary disease [Unknown]
  - Nephrolithiasis [Unknown]
  - Sluggishness [Unknown]
  - Skin disorder [Unknown]
  - Caffeine consumption [Unknown]
  - Inflammation [Unknown]
  - Wrong technique in drug usage process [Unknown]
  - Asthenia [Unknown]
  - Fatigue [Unknown]
  - Hypogonadism [Unknown]
  - Actinic keratosis [Unknown]
  - Sexual dysfunction [Not Recovered/Not Resolved]
  - Loss of libido [Unknown]
  - Erectile dysfunction [Not Recovered/Not Resolved]
  - Drug administration error [Unknown]
